FAERS Safety Report 14019404 (Version 1)
Quarter: 2017Q3

REPORT INFORMATION
  Report Type: Report from Study
  Country: US (occurrence: US)
  Receive Date: 20170928
  Receipt Date: 20170928
  Transmission Date: 20171128
  Serious: Yes (Hospitalization)
  Sender: FDA-Public Use
  Company Number: US-HORIZON-KRY-0078-2017

PATIENT
  Age: 43 Year
  Sex: Male

DRUGS (3)
  1. KRYSTEXXA [Suspect]
     Active Substance: PEGLOTICASE
     Indication: GOUT
     Dosage: EVERY 2 WEEKS
     Route: 042
     Dates: start: 20170602
  2. PREDNISONE. [Concomitant]
     Active Substance: PREDNISONE
  3. COLCRYS [Concomitant]
     Active Substance: COLCHICINE

REACTIONS (3)
  - Drug dose omission [Unknown]
  - Gout [Recovering/Resolving]
  - Swelling [Recovering/Resolving]

NARRATIVE: CASE EVENT DATE: 20170609
